FAERS Safety Report 5572027-8 (Version None)
Quarter: 2007Q4

REPORT INFORMATION
  Report Type: 
  Country: None (occurrence: None)
  Receive Date: 20071221
  Receipt Date: 20071211
  Transmission Date: 20080405
  Serious: Yes (Hospitalization)
  Sender: FDA-Public Use
  Company Number: FR-ABBOTT-07P-056-0425631-00

PATIENT
  Sex: Female

DRUGS (4)
  1. DEPAKOTE [Suspect]
     Indication: BIPOLAR DISORDER
     Route: 048
     Dates: start: 20050101
  2. DEPAKOTE [Suspect]
     Route: 048
  3. DEPAKOTE [Suspect]
     Route: 048
  4. HEPTAMINOL HYDROCHLORIDE [Concomitant]
     Indication: DRUG USE FOR UNKNOWN INDICATION
     Route: 048

REACTIONS (4)
  - EPILEPSY [None]
  - FALL [None]
  - POSTURE ABNORMAL [None]
  - SUBDURAL HAEMATOMA [None]
